FAERS Safety Report 7490339-8 (Version None)
Quarter: 2011Q2

REPORT INFORMATION
  Report Type: 
  Country: None (occurrence: None)
  Receive Date: 20110512
  Receipt Date: 20110505
  Transmission Date: 20111010
  Serious: Yes (Other)
  Sender: FDA-Public Use
  Company Number: DKLU1070336

PATIENT
  Age: 3 Year
  Sex: Male

DRUGS (4)
  1. LEVOCARNITINE(LEVOCARNITINE) [Concomitant]
  2. VALPROIC ACID [Concomitant]
  3. SABRIL [Suspect]
     Indication: INFANTILE SPASMS
     Dosage: 6 ML MILLILITRE(S), 3 IN 1 D, ORAL
     Route: 048
     Dates: start: 20091001
  4. CLONAZEPAM [Concomitant]

REACTIONS (2)
  - RETINAL PIGMENT EPITHELIOPATHY [None]
  - RETINOGRAM ABNORMAL [None]
